FAERS Safety Report 24078442 (Version 1)
Quarter: 2024Q3

REPORT INFORMATION
  Report Type: Spontaneous
  Country: US (occurrence: US)
  Receive Date: 20240711
  Receipt Date: 20240711
  Transmission Date: 20241017
  Serious: Yes (Hospitalization)
  Sender: STRIDES
  Company Number: US-STRIDES ARCOLAB LIMITED-2024SP008084

PATIENT
  Age: 51 Year
  Sex: Female

DRUGS (10)
  1. PREDNISOLONE [Suspect]
     Active Substance: PREDNISOLONE
     Indication: Eosinophilia
     Dosage: UNK
     Route: 048
  2. PREDNISOLONE [Suspect]
     Active Substance: PREDNISOLONE
     Dosage: 20 MILLIGRAM, QD (TAPERED)
     Route: 048
  3. BUMEX [Suspect]
     Active Substance: BUMETANIDE
     Indication: Cardiac failure acute
     Dosage: 2.5 MILLIGRAM, BID
     Route: 048
  4. BUMEX [Suspect]
     Active Substance: BUMETANIDE
     Indication: Eosinophilia
     Dosage: 2 MILLIGRAM, QD
     Route: 048
  5. ELIQUIS [Suspect]
     Active Substance: APIXABAN
     Indication: Eosinophilia
     Dosage: 5 MILLIGRAM, BID
     Route: 065
  6. NUCALA [Suspect]
     Active Substance: MEPOLIZUMAB
     Indication: Eosinophilia
     Dosage: 300 MILLIGRAM, EVERY 4 WEEKS
     Route: 058
  7. DOBUTAMINE [Concomitant]
     Active Substance: DOBUTAMINE HYDROCHLORIDE
     Indication: Cardiac failure acute
     Dosage: UNK, 2.5?MCG/KG/MIN
     Route: 065
  8. METHYLPREDNISOLONE [Concomitant]
     Active Substance: METHYLPREDNISOLONE
     Indication: Hypereosinophilic syndrome
     Dosage: 1000 MILLIGRAM, QD
     Route: 065
  9. METHYLPREDNISOLONE [Concomitant]
     Active Substance: METHYLPREDNISOLONE
     Dosage: UNK
     Route: 065
  10. HEPARIN [Concomitant]
     Active Substance: HEPARIN SODIUM
     Indication: Cardiac ventricular thrombosis
     Dosage: UNK
     Route: 065

REACTIONS (1)
  - Drug ineffective [Unknown]
